FAERS Safety Report 21088721 (Version 1)
Quarter: 2022Q3

REPORT INFORMATION
  Report Type: Report from Study
  Country: CA (occurrence: CA)
  Receive Date: 20220715
  Receipt Date: 20220715
  Transmission Date: 20221027
  Serious: Yes (Hospitalization)
  Sender: FDA-Public Use
  Company Number: CA-PFIZER INC-202200952465

PATIENT
  Age: 70 Year
  Sex: Male

DRUGS (2)
  1. VENLAFAXINE HCL [Suspect]
     Active Substance: VENLAFAXINE HYDROCHLORIDE
     Indication: Hypertension
     Dosage: 75 MG, 1X/DAY
     Route: 048
  2. SANDOSTATIN [Suspect]
     Active Substance: OCTREOTIDE ACETATE
     Indication: Carcinoid tumour
     Dosage: 30 MG, MONTHLY
     Route: 030

REACTIONS (6)
  - Inappropriate schedule of product administration [Unknown]
  - Blood pressure abnormal [Recovered/Resolved]
  - Body temperature decreased [Recovered/Resolved]
  - Constipation [Recovered/Resolved]
  - Heart rate decreased [Recovered/Resolved]
  - Vomiting [Recovered/Resolved]
